FAERS Safety Report 19773907 (Version 6)
Quarter: 2023Q1

REPORT INFORMATION
  Report Type: Spontaneous
  Country: US (occurrence: US)
  Receive Date: 20210831
  Receipt Date: 20230227
  Transmission Date: 20230417
  Serious: Yes (Other)
  Sender: FDA-Public Use
  Company Number: US-PFIZER INC-202101097460

PATIENT
  Age: 46 Year
  Sex: Male

DRUGS (2)
  1. EUCRISA [Suspect]
     Active Substance: CRISABOROLE
     Indication: Tissue injury
     Dosage: 60G TUBE
     Dates: start: 2017
  2. EUCRISA [Suspect]
     Active Substance: CRISABOROLE
     Indication: Skin disorder
     Dosage: 2X/DAY (EVERY MORNING EVERY NIGHT)
     Route: 061

REACTIONS (4)
  - Skin cancer [Unknown]
  - Drug dependence [Unknown]
  - Off label use [Unknown]
  - Drug effective for unapproved indication [Unknown]
